FAERS Safety Report 19823047 (Version 11)
Quarter: 2025Q1

REPORT INFORMATION
  Report Type: Spontaneous
  Country: US (occurrence: US)
  Receive Date: 20210913
  Receipt Date: 20250103
  Transmission Date: 20250409
  Serious: Yes (Other)
  Sender: PFIZER
  Company Number: US-PFIZER INC-202101134577

PATIENT
  Age: 72 Year
  Sex: Female

DRUGS (1)
  1. XELJANZ XR [Suspect]
     Active Substance: TOFACITINIB CITRATE
     Route: 048

REACTIONS (10)
  - Shoulder fracture [Unknown]
  - Fall [Unknown]
  - Eye disorder [Unknown]
  - Pain [Unknown]
  - Gastrooesophageal reflux disease [Unknown]
  - Skin discolouration [Unknown]
  - Pain of skin [Not Recovered/Not Resolved]
  - Dry skin [Unknown]
  - Abdominal discomfort [Unknown]
  - Arthropathy [Unknown]
